FAERS Safety Report 19834773 (Version 2)
Quarter: 2021Q3

REPORT INFORMATION
  Report Type: Spontaneous
  Country: JP (occurrence: JP)
  Receive Date: 20210915
  Receipt Date: 20210915
  Transmission Date: 20211014
  Serious: Yes (Other)
  Sender: FDA-Public Use
  Company Number: JP-ORPHANEU-2021003748

PATIENT

DRUGS (5)
  1. UNSPECIFIED CARGLUMIC ACID [Suspect]
     Active Substance: CARGLUMIC ACID
     Indication: HYPERAMMONAEMIA
  2. VITAMIN B12 [Suspect]
     Active Substance: CYANOCOBALAMIN
     Indication: METHYLMALONIC ACIDURIA
  3. SODIUM BENZOATE [Suspect]
     Active Substance: SODIUM BENZOATE
     Indication: METHYLMALONIC ACIDURIA
  4. ARGININE [Suspect]
     Active Substance: ARGININE
     Indication: METHYLMALONIC ACIDURIA
  5. L?CARNITINE [LEVOCARNITINE] [Suspect]
     Active Substance: LEVOCARNITINE
     Indication: METHYLMALONIC ACIDURIA

REACTIONS (1)
  - Rhabdomyolysis [Recovering/Resolving]
